FAERS Safety Report 4555078-1 (Version None)
Quarter: 2004Q4

REPORT INFORMATION
  Report Type: 
  Country: None (occurrence: None)
  Receive Date: 20041217
  Receipt Date: 20040803
  Transmission Date: 20050328
  Serious: No
  Sender: FDA-Public Use
  Company Number: 2004-BP-05370BP

PATIENT
  Age: 74 Year
  Sex: Male
  Weight: 120.6 kg

DRUGS (1)
  1. SPIRIVA HANDIHANDLER (TIOTROPIUM BROMIDE) [Suspect]
     Indication: CHRONIC OBSTRUCTIVE AIRWAYS DISEASE
     Dosage: 36 MCG (18 MCG, 2 INHALATIONS QD), IH
     Route: 055
     Dates: start: 20040601, end: 20040609

REACTIONS (4)
  - COUGH [None]
  - SPUTUM ABNORMAL [None]
  - URTICARIA [None]
  - WHEEZING [None]
